FAERS Safety Report 9456744 (Version 2)
Quarter: 2013Q4

REPORT INFORMATION
  Report Type: Spontaneous
  Country: US (occurrence: US)
  Receive Date: 20130813
  Receipt Date: 20131028
  Transmission Date: 20140711
  Serious: No
  Sender: FDA-Public Use
  Company Number: US-009507513-1308USA005835

PATIENT
  Age: 29 Year
  Sex: Male
  Weight: 72.56 kg

DRUGS (3)
  1. CLARITIN [Suspect]
     Indication: SEASONAL ALLERGY
     Dosage: 10 MG, QD
     Route: 045
     Dates: start: 201306, end: 201306
  2. CLARITIN [Suspect]
     Indication: RHINORRHOEA
  3. SUMATRIPTAN [Concomitant]
     Indication: MIGRAINE
     Dosage: UNK, UNKNOWN

REACTIONS (1)
  - Drug ineffective [Unknown]
